FAERS Safety Report 15172861 (Version 1)
Quarter: 2018Q3

REPORT INFORMATION
  Report Type: Spontaneous
  Country: US (occurrence: US)
  Receive Date: 20180720
  Receipt Date: 20180720
  Transmission Date: 20181010
  Serious: No
  Sender: FDA-Public Use
  Company Number: US-ROCHE-2122116

PATIENT
  Age: 53 Year
  Sex: Female

DRUGS (6)
  1. LAPATINIB [Suspect]
     Active Substance: LAPATINIB
     Indication: RECTAL CANCER METASTATIC
     Route: 048
  2. PERTUZUMAB. [Suspect]
     Active Substance: PERTUZUMAB
     Indication: RECTAL CANCER METASTATIC
     Route: 065
  3. IRINOTECAN [Concomitant]
     Active Substance: IRINOTECAN
  4. OXALIPLATIN. [Concomitant]
     Active Substance: OXALIPLATIN
  5. TRASTUZUMAB. [Suspect]
     Active Substance: TRASTUZUMAB
     Indication: RECTAL CANCER METASTATIC
     Route: 042
  6. 5?FLUOROURACIL [Concomitant]
     Active Substance: FLUOROURACIL

REACTIONS (3)
  - Off label use [Unknown]
  - Intentional product use issue [Unknown]
  - Drug resistance [Unknown]
